FAERS Safety Report 11540457 (Version 1)
Quarter: 2015Q3

REPORT INFORMATION
  Report Type: Spontaneous
  Country: US (occurrence: US)
  Receive Date: 20150923
  Receipt Date: 20150923
  Transmission Date: 20151125
  Serious: No
  Sender: FDA-Public Use
  Company Number: US-BEH-2014046859

PATIENT
  Sex: Male
  Weight: 47 kg

DRUGS (14)
  1. NORMAL SALINE [Concomitant]
     Active Substance: SODIUM CHLORIDE
  2. MULTIVITAMIN [Concomitant]
     Active Substance: VITAMINS
  3. ACETAMINOPHEN. [Concomitant]
     Active Substance: ACETAMINOPHEN
  4. EPIPEN [Concomitant]
     Active Substance: EPINEPHRINE
  5. PRIVIGEN [Suspect]
     Active Substance: HUMAN IMMUNOGLOBULIN G
     Indication: MULTIPLE SCLEROSIS
     Dosage: 20 G VIALS
     Route: 042
  6. DIPHENHYDRAMINE. [Concomitant]
     Active Substance: DIPHENHYDRAMINE
  7. LMX CREAM [Concomitant]
  8. RANITIDINE [Concomitant]
     Active Substance: RANITIDINE\RANITIDINE HYDROCHLORIDE
  9. NAPROXEN. [Concomitant]
     Active Substance: NAPROXEN
  10. HEPARIN [Concomitant]
     Active Substance: HEPARIN SODIUM
  11. SODIUM CHLORIDE. [Concomitant]
     Active Substance: SODIUM CHLORIDE
  12. VITAMIN D [Concomitant]
     Active Substance: CHOLECALCIFEROL
  13. LIDOCAINE/PRILOCAINE [Concomitant]
  14. MIRALAX [Concomitant]
     Active Substance: POLYETHYLENE GLYCOL 3350

REACTIONS (1)
  - Viral infection [Unknown]
